FAERS Safety Report 24540084 (Version 1)
Quarter: 2024Q4

REPORT INFORMATION
  Report Type: Spontaneous
  Country: US (occurrence: None)
  Receive Date: 20241023
  Receipt Date: 20241023
  Transmission Date: 20250115
  Serious: Yes (Other)
  Sender: Public
  Company Number: None

PATIENT
  Sex: Female

DRUGS (3)
  1. HUMIRA [Suspect]
     Active Substance: ADALIMUMAB
     Indication: Rheumatoid arthritis
     Dosage: FREQUENCY : EVERY OTHER WEEK; IN THE ABDOMEN OR THIGH (ROTATE SITES)?
     Route: 058
  2. HUMIRA [Suspect]
     Active Substance: ADALIMUMAB
     Indication: Rheumatoid factor negative
  3. HUMIRA [Suspect]
     Active Substance: ADALIMUMAB
     Indication: Polyarthritis

REACTIONS (6)
  - Pain [None]
  - Pyrexia [None]
  - Hyperhidrosis [None]
  - Infection [None]
  - Illness [None]
  - Therapy interrupted [None]
